FAERS Safety Report 4818001-8 (Version None)
Quarter: 2005Q4

REPORT INFORMATION
  Report Type: 
  Country: None (occurrence: None)
  Receive Date: 20051102
  Receipt Date: 20050930
  Transmission Date: 20060501
  Serious: Yes (Other)
  Sender: FDA-Public Use
  Company Number: DE-ROCHE-419444

PATIENT
  Age: 44 Year
  Sex: Female

DRUGS (2)
  1. CELLCEPT [Suspect]
     Indication: DRUG USE FOR UNKNOWN INDICATION
     Route: 048
     Dates: start: 20050215
  2. MESTINON [Concomitant]
     Dosage: DRUG REPORTED AS MASTINON.
     Route: 048
     Dates: start: 19990615

REACTIONS (1)
  - SUPERFICIAL SPREADING MELANOMA STAGE UNSPECIFIED [None]
